FAERS Safety Report 10111227 (Version 2)
Quarter: 2015Q1

REPORT INFORMATION
  Report Type: Other
  Country: US (occurrence: US)
  Receive Date: 20140425
  Receipt Date: 20150114
  Transmission Date: 20150720
  Serious: Yes (Hospitalization, Other)
  Sender: FDA-Public Use
  Company Number: US-GSKPPD-2014GSK011286

PATIENT
  Age: 70 Year
  Sex: Female

DRUGS (7)
  1. CAPTOPRIL. [Concomitant]
     Active Substance: CAPTOPRIL
  2. COREG [Concomitant]
     Active Substance: CARVEDILOL
  3. ASPIRIN. [Concomitant]
     Active Substance: ASPIRIN
  4. LASIX [Concomitant]
     Active Substance: FUROSEMIDE
  5. LOPRESSOR [Concomitant]
     Active Substance: METOPROLOL TARTRATE
  6. AVANDIA [Suspect]
     Active Substance: ROSIGLITAZONE MALEATE
     Indication: DIABETES MELLITUS
     Dosage: DATES OF AVANDIA USE COULD NOT BE CONFIRMED IN RECORDS REVIEWED.
     Route: 048
  7. DYAZIDE [Concomitant]
     Active Substance: HYDROCHLOROTHIAZIDE\TRIAMTERENE
     Dosage: UNIT DOSE: 75/50

REACTIONS (3)
  - Cardiac failure congestive [Unknown]
  - Cerebrovascular accident [Unknown]
  - Myocardial infarction [Recovered/Resolved]

NARRATIVE: CASE EVENT DATE: 20030805
